FAERS Safety Report 5092063-8 (Version None)
Quarter: 2006Q3

REPORT INFORMATION
  Report Type: 
  Country: None (occurrence: None)
  Receive Date: 20060829
  Receipt Date: 20060821
  Transmission Date: 20061208
  Serious: Yes (Death)
  Sender: FDA-Public Use
  Company Number: CA-BOEHRINGER INGELHEIM PHARMACEUTICALS, INC.-2006-CN-00436CN

PATIENT
  Sex: Female
  Weight: 82.6 kg

DRUGS (1)
  1. TIPRANAVIR + RITONAVIR CO-ADMIN [Suspect]

REACTIONS (1)
  - DEATH [None]
